FAERS Safety Report 10402348 (Version 2)
Quarter: 2015Q3

REPORT INFORMATION
  Report Type: Report from Study
  Country: US (occurrence: US)
  Receive Date: 20140822
  Receipt Date: 20150710
  Transmission Date: 20151125
  Serious: No
  Sender: FDA-Public Use
  Company Number: US-SA-2014SA109892

PATIENT
  Age: 57 Year
  Sex: Female
  Weight: 56.69 kg

DRUGS (8)
  1. MECLIZINE [Concomitant]
     Active Substance: MECLIZINE\MECLIZINE HYDROCHLORIDE
  2. TRANXENE T-TAB [Concomitant]
     Active Substance: CLORAZEPATE DIPOTASSIUM
  3. CELEXA [Concomitant]
     Active Substance: CITALOPRAM HYDROBROMIDE
  4. ALEMTUZUMAB [Suspect]
     Active Substance: ALEMTUZUMAB
     Indication: MULTIPLE SCLEROSIS
     Route: 065
  5. BACLOFEN. [Concomitant]
     Active Substance: BACLOFEN
  6. AMBIEN [Concomitant]
     Active Substance: ZOLPIDEM TARTRATE
  7. TRILEPTAL [Concomitant]
     Active Substance: OXCARBAZEPINE
  8. KEFLEX [Concomitant]
     Active Substance: CEPHALEXIN
     Route: 048

REACTIONS (1)
  - Basal cell carcinoma [Recovered/Resolved with Sequelae]

NARRATIVE: CASE EVENT DATE: 20140109
